FAERS Safety Report 22305609 (Version 3)
Quarter: 2023Q2

REPORT INFORMATION
  Report Type: Spontaneous
  Country: SE (occurrence: SE)
  Receive Date: 20230510
  Receipt Date: 20230519
  Transmission Date: 20230721
  Serious: Yes (Death, Hospitalization, Other)
  Sender: FDA-Public Use
  Company Number: SE-EMA-20150724-abhogalp-144456084

PATIENT
  Age: 31 Year
  Sex: Male
  Weight: 140 kg

DRUGS (9)
  1. BUPRENORPHINE [Interacting]
     Active Substance: BUPRENORPHINE
     Indication: Product used for unknown indication
     Dosage: UNK
     Route: 065
  2. CAFFEINE [Interacting]
     Active Substance: CAFFEINE
     Indication: Fat tissue increased
     Dosage: UNK
     Route: 065
  3. CLOMIPRAMINE [Interacting]
     Active Substance: CLOMIPRAMINE
     Indication: Attention deficit hyperactivity disorder
     Dosage: 375 MG, QD
     Route: 065
  4. CLOMIPRAMINE [Interacting]
     Active Substance: CLOMIPRAMINE
     Indication: Product used for unknown indication
  5. DRONABINOL [Interacting]
     Active Substance: DRONABINOL
     Indication: Product used for unknown indication
     Dosage: UNK
     Route: 065
  6. LISDEXAMFETAMINE DIMESYLATE [Interacting]
     Active Substance: LISDEXAMFETAMINE DIMESYLATE
     Indication: Attention deficit hyperactivity disorder
     Dosage: 130 MILLIGRAM, DAILY (130 MG, 1X/DAY:QD)
     Route: 065
  7. FLUNITRAZEPAM [Suspect]
     Active Substance: FLUNITRAZEPAM
     Indication: Attention deficit hyperactivity disorder
     Dosage: 1 MILLIGRAM, DAILY (1 MG, 1X/DAY:QD)
     Route: 065
  8. FLUNITRAZEPAM [Suspect]
     Active Substance: FLUNITRAZEPAM
     Indication: Product used for unknown indication
  9. TRAMADOL [Interacting]
     Active Substance: TRAMADOL
     Indication: Product used for unknown indication
     Dosage: UNK
     Route: 065

REACTIONS (13)
  - Hyperhidrosis [Fatal]
  - Adrenergic syndrome [Fatal]
  - Tachycardia [Fatal]
  - Confusional state [Fatal]
  - Seizure [Fatal]
  - Hyperthermia [Fatal]
  - Circulatory collapse [Fatal]
  - Disorientation [Fatal]
  - Blood creatine phosphokinase increased [Fatal]
  - Agitation [Fatal]
  - Aggression [Fatal]
  - Stress [Fatal]
  - Drug interaction [Fatal]
